FAERS Safety Report 11199413 (Version 1)
Quarter: 2015Q2

REPORT INFORMATION
  Report Type: Report from Study
  Country: KE (occurrence: KE)
  Receive Date: 20150618
  Receipt Date: 20150618
  Transmission Date: 20150821
  Serious: Yes (Hospitalization, Other)
  Sender: FDA-Public Use
  Company Number: KE-ELI_LILLY_AND_COMPANY-KE201505005797

PATIENT
  Age: 9 Year
  Sex: Male
  Weight: 20 kg

DRUGS (4)
  1. VENTOLINE                          /00139501/ [Concomitant]
     Active Substance: ALBUTEROL
     Indication: PULMONARY CONGESTION
     Dosage: UNK
     Route: 048
     Dates: start: 20150508, end: 20150514
  2. SULFADOXINE PYRIME [Concomitant]
     Indication: MALARIA
     Dosage: UNK
     Dates: start: 20150511, end: 20150513
  3. PRASUGREL HYDROCHLORIDE [Suspect]
     Active Substance: PRASUGREL HYDROCHLORIDE
     Indication: SICKLE CELL ANAEMIA
     Dosage: UNK, QD
     Route: 048
     Dates: start: 20141021, end: 20150513
  4. DICLOFENAC [Concomitant]
     Active Substance: DICLOFENAC
     Indication: SICKLE CELL ANAEMIA WITH CRISIS
     Dosage: UNK
     Route: 048
     Dates: start: 20150511, end: 20150513

REACTIONS (4)
  - Acute chest syndrome [Recovered/Resolved]
  - Anaemia [Recovered/Resolved]
  - Epistaxis [Recovered/Resolved]
  - Sickle cell anaemia with crisis [Recovered/Resolved]

NARRATIVE: CASE EVENT DATE: 20150514
